FAERS Safety Report 24953003 (Version 1)
Quarter: 2025Q1

REPORT INFORMATION
  Report Type: Spontaneous
  Country: US (occurrence: US)
  Receive Date: 20250211
  Receipt Date: 20250211
  Transmission Date: 20250409
  Serious: No
  Sender: TEVA
  Company Number: US-TEVA-VS-3293906

PATIENT
  Age: 53 Year
  Sex: Female

DRUGS (4)
  1. GABAPENTIN [Suspect]
     Active Substance: GABAPENTIN
     Indication: Product used for unknown indication
     Route: 065
  2. PROGESTERONE [Suspect]
     Active Substance: PROGESTERONE
     Indication: Menopausal symptoms
     Route: 065
  3. PROMETRIUM [Suspect]
     Active Substance: PROGESTERONE
     Indication: Product used for unknown indication
     Route: 065
  4. MINIVELLE [Concomitant]
     Active Substance: ESTRADIOL
     Indication: Product used for unknown indication

REACTIONS (5)
  - Tremor [Not Recovered/Not Resolved]
  - Overdose [Unknown]
  - Feeling abnormal [Recovered/Resolved]
  - Symptom recurrence [Not Recovered/Not Resolved]
  - Product dose omission issue [Unknown]
